FAERS Safety Report 4960567-1 (Version None)
Quarter: 2006Q1

REPORT INFORMATION
  Report Type: 
  Country: None (occurrence: None)
  Receive Date: 20060331
  Receipt Date: 20060331
  Transmission Date: 20060701
  Serious: Yes (Life-Threatening, Hospitalization, Disabling)
  Sender: FDA-Public Use
  Company Number: None

PATIENT
  Sex: Female
  Weight: 58.9676 kg

DRUGS (2)
  1. CELEBREX [Suspect]
     Indication: INFLAMMATION
     Dosage: 200 MG
     Dates: start: 20060204, end: 20060224
  2. CELEBREX [Suspect]
     Indication: POSTOPERATIVE ANALGESIA
     Dosage: 200 MG
     Dates: start: 20060204, end: 20060224

REACTIONS (4)
  - BLOOD PRESSURE INCREASED [None]
  - DRUG HYPERSENSITIVITY [None]
  - MALAISE [None]
  - STEVENS-JOHNSON SYNDROME [None]
